FAERS Safety Report 8224993-X (Version None)
Quarter: 2012Q1

REPORT INFORMATION
  Report Type: 
  Country: None (occurrence: None)
  Receive Date: 20120319
  Receipt Date: 20120309
  Transmission Date: 20120608
  Serious: Yes (Death, Hospitalization)
  Sender: FDA-Public Use
  Company Number: DSA_48152_2011

PATIENT
  Age: 49 Year
  Sex: Male

DRUGS (11)
  1. DILTIAZEM HCL [Suspect]
     Indication: PRODUCT USED FOR UNKNOWN INDICATION
     Dosage: (NOT THE PRESCRIBED AMOUNT)
  2. COLCHICINE [Suspect]
     Indication: SUICIDE ATTEMPT
     Dosage: (0.5 MG, 80 90 TABLETS, ONE TIME ( ORAL)
     Route: 048
  3. COLCHICINE [Suspect]
     Indication: PRODUCT USED FOR UNKNOWN INDICATION
     Dosage: (0.5 MG, 80 90 TABLETS, ONE TIME ( ORAL)
     Route: 048
  4. ENALAPRIL MALEATE [Suspect]
     Indication: PRODUCT USED FOR UNKNOWN INDICATION
     Dosage: (NOT THE PRESCRIBED AMOUNT)
  5. ENALAPRIL MALEATE [Suspect]
     Indication: SUICIDE ATTEMPT
     Dosage: (NOT THE PRESCRIBED AMOUNT)
  6. KETOPROFEN [Suspect]
     Indication: PRODUCT USED FOR UNKNOWN INDICATION
     Dosage: (NOT THE PRESCRIBED AMOUNT)
  7. KETOPROFEN [Suspect]
     Indication: SUICIDE ATTEMPT
     Dosage: (NOT THE PRESCRIBED AMOUNT)
  8. DICLOFENAC SODIUM [Suspect]
     Indication: SUICIDE ATTEMPT
     Dosage: (NOT THE PRESCRIBED AMOUNT)
  9. DICLOFENAC SODIUM [Suspect]
     Indication: PRODUCT USED FOR UNKNOWN INDICATION
     Dosage: (NOT THE PRESCRIBED AMOUNT)
  10. INDAPAMIDE [Suspect]
     Indication: SUICIDE ATTEMPT
     Dosage: (NOT THE PRESCRIBED AMOUNT)
  11. INDAPAMIDE [Suspect]
     Indication: PRODUCT USED FOR UNKNOWN INDICATION
     Dosage: (NOT THE PRESCRIBED AMOUNT)

REACTIONS (23)
  - DIARRHOEA [None]
  - ACUTE RESPIRATORY FAILURE [None]
  - SHOCK [None]
  - ATELECTASIS [None]
  - ARTERIOSCLEROSIS CORONARY ARTERY [None]
  - HYPERAEMIA [None]
  - CARDIAC HYPERTROPHY [None]
  - ABDOMINAL TENDERNESS [None]
  - HEPATIC STEATOSIS [None]
  - PANCREATIC ATROPHY [None]
  - EMPHYSEMA [None]
  - MULTIPLE DRUG OVERDOSE [None]
  - MULTI-ORGAN FAILURE [None]
  - LEUKOCYTOSIS [None]
  - DISSEMINATED INTRAVASCULAR COAGULATION [None]
  - CARDIAC ARREST [None]
  - BRAIN OEDEMA [None]
  - SUICIDE ATTEMPT [None]
  - VOMITING [None]
  - GENERAL PHYSICAL HEALTH DETERIORATION [None]
  - TOXICITY TO VARIOUS AGENTS [None]
  - PULMONARY OEDEMA [None]
  - PLEURAL HAEMORRHAGE [None]
